FAERS Safety Report 12833420 (Version 1)
Quarter: 2016Q4

REPORT INFORMATION
  Report Type: Spontaneous
  Country: US (occurrence: US)
  Receive Date: 20161010
  Receipt Date: 20161010
  Transmission Date: 20170207
  Serious: No
  Sender: FDA-Public Use
  Company Number: US-BAYER-2016-194800

PATIENT
  Age: 86 Year
  Sex: Male
  Weight: 74.83 kg

DRUGS (1)
  1. ALEVE [Suspect]
     Active Substance: NAPROXEN SODIUM
     Indication: SCIATICA
     Dosage: 1 DF, BID
     Route: 048
     Dates: start: 201609

REACTIONS (3)
  - Product use issue [Unknown]
  - Drug ineffective for unapproved indication [None]
  - Product use issue [Unknown]

NARRATIVE: CASE EVENT DATE: 201609
